FAERS Safety Report 4323732-2 (Version None)
Quarter: 2004Q1

REPORT INFORMATION
  Report Type: 
  Country: None (occurrence: None)
  Receive Date: 20040323
  Receipt Date: 20040308
  Transmission Date: 20041129
  Serious: Yes (Hospitalization)
  Sender: FDA-Public Use
  Company Number: 2004S1000022

PATIENT
  Age: 78 Year
  Sex: Female
  Weight: 100 kg

DRUGS (1)
  1. CUBICIN [Suspect]
     Indication: STAPHYLOCOCCAL BACTERAEMIA
     Dosage: 400 MG , QD; IV
     Route: 042
     Dates: start: 20031101

REACTIONS (10)
  - BACTERAEMIA [None]
  - BLOOD CREATININE INCREASED [None]
  - BRAIN OEDEMA [None]
  - CEREBRAL ARTERY THROMBOSIS [None]
  - CEREBROVASCULAR ACCIDENT [None]
  - CONJUNCTIVAL HAEMORRHAGE [None]
  - DISEASE RECURRENCE [None]
  - DYSPNOEA [None]
  - LETHARGY [None]
  - PYREXIA [None]
